FAERS Safety Report 7403803-4 (Version None)
Quarter: 2011Q2

REPORT INFORMATION
  Report Type: 
  Country: None (occurrence: None)
  Receive Date: 20110408
  Receipt Date: 20110329
  Transmission Date: 20111010
  Serious: Yes (Hospitalization)
  Sender: FDA-Public Use
  Company Number: PHHY2011US26728

PATIENT
  Sex: Male

DRUGS (2)
  1. EXJADE [Suspect]
     Indication: IRON METABOLISM DISORDER
     Dosage: 1750 MG,
     Route: 048
  2. EXJADE [Suspect]
     Dosage: 1500 MG,
     Route: 048

REACTIONS (2)
  - DIARRHOEA [None]
  - COLITIS [None]
